FAERS Safety Report 6051914-0 (Version None)
Quarter: 2009Q1

REPORT INFORMATION
  Report Type: 
  Country: None (occurrence: None)
  Receive Date: 20090121
  Receipt Date: 20090121
  Transmission Date: 20090719
  Serious: No
  Sender: FDA-Public Use
  Company Number: None

PATIENT
  Sex: Female
  Weight: 106.1417 kg

DRUGS (1)
  1. VICOPROFEN [Suspect]
     Indication: DYSMENORRHOEA
     Dosage: 1 TAB TID PO
     Route: 048
     Dates: start: 20080101

REACTIONS (2)
  - NAUSEA [None]
  - PRURITUS [None]
